FAERS Safety Report 5492248-2 (Version None)
Quarter: 2007Q4

REPORT INFORMATION
  Report Type: 
  Country: None (occurrence: None)
  Receive Date: 20071022
  Receipt Date: 20071015
  Transmission Date: 20080405
  Serious: Yes (Hospitalization)
  Sender: FDA-Public Use
  Company Number: SE-ASTRAZENECA-2007SE03429

PATIENT
  Age: 26351 Day
  Sex: Male

DRUGS (16)
  1. METOPROLOL SUCCINATE [Suspect]
     Indication: CARDIAC FAILURE
     Route: 048
     Dates: end: 20070222
  2. METOPROLOL SUCCINATE [Suspect]
     Route: 048
     Dates: start: 20070223, end: 20070620
  3. DIGOXIN [Suspect]
     Indication: CARDIAC FAILURE
     Route: 048
     Dates: start: 20061110, end: 20070620
  4. ENALAPRIL MALEATE [Concomitant]
     Indication: CARDIAC FAILURE
     Route: 048
  5. FURIX [Concomitant]
     Indication: CARDIAC FAILURE
     Route: 048
  6. TROMBYL [Concomitant]
     Indication: THROMBOSIS PROPHYLAXIS
     Route: 048
  7. SIMVASTATIN [Concomitant]
     Indication: HYPERLIPIDAEMIA
     Route: 048
  8. ACTRAPID [Concomitant]
     Indication: DIABETES MELLITUS
     Route: 058
  9. INSULATARD [Concomitant]
     Indication: DIABETES MELLITUS
     Route: 058
  10. ATARAX [Concomitant]
     Indication: ANXIETY
     Route: 048
     Dates: start: 20061125
  11. ZOPICLON [Concomitant]
     Indication: INSOMNIA
     Route: 048
  12. TIMOSAN [Concomitant]
     Indication: GLAUCOMA
     Route: 047
  13. IMDUR [Concomitant]
     Indication: ANGINA PECTORIS
     Route: 048
  14. DICLOFENAC [Concomitant]
     Indication: GOUT
     Route: 048
     Dates: start: 20070524, end: 20070604
  15. DICLOFENAC [Concomitant]
     Route: 048
     Dates: start: 20070608, end: 20070620
  16. ALLOPURINOL [Concomitant]
     Indication: GOUT
     Route: 048
     Dates: start: 20070605, end: 20070607

REACTIONS (3)
  - CARDIAC FAILURE [None]
  - MYOCARDIAL INFARCTION [None]
  - SICK SINUS SYNDROME [None]
